FAERS Safety Report 20187576 (Version 8)
Quarter: 2022Q4

REPORT INFORMATION
  Report Type: Report from Study
  Country: MX (occurrence: MX)
  Receive Date: 20211215
  Receipt Date: 20221201
  Transmission Date: 20230112
  Serious: Yes (Other)
  Sender: FDA-Public Use
  Company Number: MX-NOVARTISPH-NVSC2021MX284002

PATIENT
  Sex: Female

DRUGS (2)
  1. TASIGNA [Suspect]
     Active Substance: NILOTINIB
     Indication: Primary myelofibrosis
     Dosage: UNK
     Route: 048
  2. TASIGNA [Suspect]
     Active Substance: NILOTINIB
     Indication: Chronic myeloid leukaemia

REACTIONS (23)
  - Leukaemia [Unknown]
  - Leiomyoma [Unknown]
  - Vitiligo [Unknown]
  - Thyroid disorder [Unknown]
  - Sleep disorder [Unknown]
  - Laziness [Unknown]
  - Nervousness [Unknown]
  - Pain [Unknown]
  - Stress [Unknown]
  - Lip pain [Recovering/Resolving]
  - Eye infection [Recovered/Resolved]
  - Pain in extremity [Unknown]
  - Arthralgia [Unknown]
  - Tinnitus [Not Recovered/Not Resolved]
  - Headache [Not Recovered/Not Resolved]
  - Insomnia [Unknown]
  - Eye pruritus [Unknown]
  - Ocular hyperaemia [Unknown]
  - Oropharyngeal discomfort [Recovering/Resolving]
  - Fatigue [Unknown]
  - General physical health deterioration [Unknown]
  - Anxiety [Unknown]
  - Product use in unapproved indication [Unknown]
